FAERS Safety Report 5035127-7 (Version None)
Quarter: 2006Q2

REPORT INFORMATION
  Report Type: 
  Country: None (occurrence: None)
  Receive Date: 20060519
  Receipt Date: 20060207
  Transmission Date: 20061013
  Serious: No
  Sender: FDA-Public Use
  Company Number: TPA2005A01621

PATIENT
  Age: 64 Year
  Sex: Female
  Weight: 69.4003 kg

DRUGS (10)
  1. ROZEREM [Suspect]
     Indication: INSOMNIA
     Dosage: 8 MG, PER ORAL
     Route: 048
     Dates: start: 20051110, end: 20051113
  2. ROZEREM [Suspect]
     Indication: SLEEP DISORDER
     Dosage: 8 MG, PER ORAL
     Route: 048
     Dates: start: 20051110, end: 20051113
  3. QUINAPRIL (QUINAPRIL) (5 MILLIGRAM) [Concomitant]
  4. CLONAZEPAM (CLONAZEPAM) (0.5 MILLIGRAM) [Concomitant]
  5. TRAMADOL (TRAMADOL) (50 MILLIGRAM) [Concomitant]
  6. LIPITOR [Concomitant]
  7. GLUCOPHAGE (METFORMIN) (500 MILLIGRAM) [Concomitant]
  8. GEMFIBROZIL (GEMFIBROZIL) (600 MILLIGRAM) [Concomitant]
  9. PREMARIN (ESTROGENS CONJUGATED) (0.3 MILLIGRAM) [Concomitant]
  10. MAXALT (RIZATRIPTAN) (10 MILLIGRAM) [Concomitant]

REACTIONS (1)
  - NIGHTMARE [None]
